FAERS Safety Report 8171389-5 (Version None)
Quarter: 2012Q1

REPORT INFORMATION
  Report Type: 
  Country: None (occurrence: None)
  Receive Date: 20120113
  Receipt Date: 20111121
  Transmission Date: 20120608
  Serious: Yes (Other)
  Sender: FDA-Public Use
  Company Number: PHHY2011US47816

PATIENT
  Age: 8 Year
  Sex: Female
  Weight: 31 kg

DRUGS (4)
  1. ANTIBIOTICS (NO INGREDIENTS/SUBSTANCES) [Concomitant]
  2. ILARIS [Suspect]
     Indication: FAMILIAL COLD AUTOINFLAMMATORY SYNDROME
     Dosage: 90 MG, EVERY 8 WEEKS, SUBCUTANEOUS, 75 MG EVERY 8 WEEKS, SUBCUTANEOUS
     Route: 058
     Dates: start: 20090916
  3. ILARIS [Suspect]
     Indication: URTICARIA
     Dosage: 90 MG, EVERY 8 WEEKS, SUBCUTANEOUS, 75 MG EVERY 8 WEEKS, SUBCUTANEOUS
     Route: 058
     Dates: start: 20090916
  4. ILARIS [Suspect]
     Indication: CRYOPYRIN ASSOCIATED PERIODIC SYNDROME
     Dosage: 90 MG, EVERY 8 WEEKS, SUBCUTANEOUS, 75 MG EVERY 8 WEEKS, SUBCUTANEOUS
     Route: 058
     Dates: start: 20090916

REACTIONS (1)
  - URINARY TRACT INFECTION [None]
